FAERS Safety Report 8421374-0 (Version None)
Quarter: 2012Q2

REPORT INFORMATION
  Report Type: 
  Country: None (occurrence: None)
  Receive Date: 20120608
  Receipt Date: 20120605
  Transmission Date: 20120825
  Serious: No
  Sender: FDA-Public Use
  Company Number: PHHY2011US38986

PATIENT
  Sex: Female

DRUGS (14)
  1. SYMBICORT [Concomitant]
  2. FAMOTIDINE [Concomitant]
  3. THAM [Concomitant]
  4. COMBIVENT [Concomitant]
  5. HYDROCODONE BITARTRATE AND ACETAMINOPHEN [Concomitant]
  6. CYMBALTA [Concomitant]
  7. ONDANSETRON [Concomitant]
  8. NEOMYCIN-POLYMYXIN B SULFATE-GRAMICIDIN [Concomitant]
  9. PREDNISONE TAB [Concomitant]
  10. FLUCONAZOLE [Concomitant]
  11. SINGULAIR [Concomitant]
  12. ALLOTYROL [Concomitant]
  13. TASIGNA [Suspect]
     Indication: CHRONIC MYELOID LEUKAEMIA
     Dosage: 300 MG, QD
     Route: 048
     Dates: start: 20101117
  14. ALBUTEROL SULFATE [Concomitant]

REACTIONS (11)
  - VOMITING [None]
  - PYREXIA [None]
  - EAR INFECTION [None]
  - FUNGAL INFECTION [None]
  - FIBROMYALGIA [None]
  - DEHYDRATION [None]
  - HEADACHE [None]
  - SPLENOMEGALY [None]
  - NAUSEA [None]
  - BONE PAIN [None]
  - WEIGHT DECREASED [None]
